FAERS Safety Report 5978316-7 (Version None)
Quarter: 2008Q4

REPORT INFORMATION
  Report Type: 
  Country: None (occurrence: None)
  Receive Date: 20081204
  Receipt Date: 20081020
  Transmission Date: 20090506
  Serious: No
  Sender: FDA-Public Use
  Company Number: US-BAYER-200836544NA

PATIENT
  Age: 25 Year
  Sex: Female
  Weight: 98 kg

DRUGS (1)
  1. MIRENA [Suspect]
     Indication: CONTRACEPTION
     Route: 015
     Dates: start: 20071219, end: 20080901

REACTIONS (2)
  - IUCD COMPLICATION [None]
  - POST PROCEDURAL HAEMORRHAGE [None]
